FAERS Safety Report 23533146 (Version 1)
Quarter: 2024Q1

REPORT INFORMATION
  Report Type: Spontaneous
  Country: US (occurrence: US)
  Receive Date: 20240216
  Receipt Date: 20240216
  Transmission Date: 20240410
  Serious: Yes (Hospitalization, Other)
  Sender: FDA-Public Use
  Company Number: US-PFIZER INC-PV202300209780

PATIENT
  Age: 65 Year
  Sex: Male
  Weight: 110.66 kg

DRUGS (1)
  1. TIKOSYN [Suspect]
     Active Substance: DOFETILIDE
     Dosage: UNK

REACTIONS (2)
  - Alcoholic pancreatitis [Unknown]
  - Electrocardiogram QT prolonged [Recovered/Resolved]
